FAERS Safety Report 6657021-8 (Version None)
Quarter: 2010Q1

REPORT INFORMATION
  Report Type: 
  Country: None (occurrence: None)
  Receive Date: 20100329
  Receipt Date: 20100329
  Transmission Date: 20100710
  Serious: No
  Sender: FDA-Public Use
  Company Number: None

PATIENT
  Age: 64 Year
  Sex: Male

DRUGS (1)
  1. DILAUDID [Suspect]
     Dosage: 1 MG ONCE IV PUSH

REACTIONS (7)
  - BLOOD PRESSURE INCREASED [None]
  - BRADYCARDIA [None]
  - CYANOSIS [None]
  - EYE ROLLING [None]
  - HEART RATE INCREASED [None]
  - OXYGEN SATURATION DECREASED [None]
  - UNRESPONSIVE TO STIMULI [None]
